FAERS Safety Report 6930625-0 (Version None)
Quarter: 2010Q3

REPORT INFORMATION
  Report Type: 
  Country: None (occurrence: None)
  Receive Date: 20100813
  Receipt Date: 20100805
  Transmission Date: 20110219
  Serious: Yes (Other)
  Sender: FDA-Public Use
  Company Number: 016759

PATIENT
  Sex: Male

DRUGS (2)
  1. VIMPAT [Suspect]
     Dosage: ADD-ON THERAPY
  2. TIMOX /00596701/ (TIMOX) (NOT SPECIFIED) [Suspect]
     Dosage: UPTITRATED DOSE

REACTIONS (1)
  - CARDIOVASCULAR DISORDER [None]
